FAERS Safety Report 6544770-5 (Version None)
Quarter: 2010Q1

REPORT INFORMATION
  Report Type: 
  Country: None (occurrence: None)
  Receive Date: 20100120
  Receipt Date: 20100120
  Transmission Date: 20100710
  Serious: Yes (Other)
  Sender: FDA-Public Use
  Company Number: None

PATIENT
  Age: 58 Year
  Sex: Female
  Weight: 65.7716 kg

DRUGS (1)
  1. XYREM [Suspect]
     Indication: NARCOLEPSY
     Dosage: 3.50G IN 60 MLS OF WATER 2X NIGHTLY PO
     Route: 048

REACTIONS (4)
  - ALOPECIA [None]
  - DISORIENTATION [None]
  - ENURESIS [None]
  - HALLUCINATION [None]
